FAERS Safety Report 18783270 (Version 1)
Quarter: 2021Q1

REPORT INFORMATION
  Report Type: Spontaneous
  Country: US (occurrence: US)
  Receive Date: 20210125
  Receipt Date: 20210125
  Transmission Date: 20210419
  Serious: No
  Sender: FDA-Public Use
  Company Number: US-RECORDATI RARE DISEASES-2105772

PATIENT
  Age: 3 Month
  Sex: Female

DRUGS (1)
  1. CARBAGLU [Suspect]
     Active Substance: CARGLUMIC ACID
     Indication: ACIDOSIS
     Dates: start: 20200717

REACTIONS (1)
  - Amino acid level increased [Unknown]

NARRATIVE: CASE EVENT DATE: 20200914
